FAERS Safety Report 9570197 (Version 1)
Quarter: 2013Q3

REPORT INFORMATION
  Report Type: Spontaneous
  Country: US (occurrence: US)
  Receive Date: 20130930
  Receipt Date: 20130930
  Transmission Date: 20140515
  Serious: No
  Sender: FDA-Public Use
  Company Number: US-AMGEN-USASP2013064430

PATIENT
  Age: 32 Year
  Sex: Male

DRUGS (3)
  1. ENBREL [Suspect]
     Indication: PSORIASIS
     Dosage: UNK
     Route: 065
     Dates: start: 201306
  2. HUMIRA [Concomitant]
     Indication: PSORIASIS
     Dosage: UNK
     Dates: start: 2010, end: 2012
  3. HUMIRA [Concomitant]
     Dosage: UNK
     Dates: start: 20130609, end: 20130609

REACTIONS (2)
  - Dizziness [Unknown]
  - Drug effect delayed [Unknown]
